FAERS Safety Report 12349062 (Version 1)
Quarter: 2016Q2

REPORT INFORMATION
  Report Type: Spontaneous
  Country: US (occurrence: JP)
  Receive Date: 20160509
  Receipt Date: 20160509
  Transmission Date: 20160815
  Serious: Yes (Hospitalization)
  Sender: FDA-Public Use
  Company Number: JP-CELGENEUS-JPN-2016047775

PATIENT
  Age: 80 Year
  Sex: Male

DRUGS (1)
  1. AZACITIDINE INJECTABLE [Suspect]
     Active Substance: AZACITIDINE
     Indication: PRODUCT USED FOR UNKNOWN INDICATION
     Dosage: 100 MILLIGRAM/SQ. METER
     Route: 058
     Dates: start: 20160329

REACTIONS (1)
  - Blood bilirubin increased [Not Recovered/Not Resolved]
